FAERS Safety Report 10703984 (Version 1)
Quarter: 2015Q1

REPORT INFORMATION
  Report Type: Spontaneous
  Country: US (occurrence: None)
  Receive Date: 20150108
  Receipt Date: 20150108
  Transmission Date: 20150721
  Serious: Yes (Hospitalization, Disabling)
  Sender: FDA-Public Use
  Company Number: None

PATIENT
  Age: 74 Year
  Sex: Female
  Weight: 45.36 kg

DRUGS (1)
  1. OXYBUTYNIN CL ER [Suspect]
     Active Substance: OXYBUTYNIN CHLORIDE
     Indication: URINARY INCONTINENCE
     Dosage: 1 TABLET
     Route: 048
     Dates: start: 20140922, end: 20141009

REACTIONS (9)
  - Abasia [None]
  - Dysstasia [None]
  - Spinal fracture [None]
  - Dementia [None]
  - Fall [None]
  - Unresponsive to stimuli [None]
  - Weight decreased [None]
  - Activities of daily living impaired [None]
  - Impaired self-care [None]

NARRATIVE: CASE EVENT DATE: 20141009
